FAERS Safety Report 12528577 (Version 1)
Quarter: 2016Q3

REPORT INFORMATION
  Report Type: Spontaneous
  Country: CA (occurrence: CA)
  Receive Date: 20160705
  Receipt Date: 20160705
  Transmission Date: 20161109
  Serious: Yes (Other)
  Sender: FDA-Public Use
  Company Number: CA-HQ SPECIALTY-CA-2016INT000451

PATIENT
  Age: 35 Year
  Sex: Female

DRUGS (3)
  1. FOLIC ACID. [Concomitant]
     Active Substance: FOLIC ACID
     Indication: PRODUCT USED FOR UNKNOWN INDICATION
     Dosage: UNK
  2. METHOTREXATE SODIUM. [Suspect]
     Active Substance: METHOTREXATE SODIUM
     Indication: RHEUMATOID ARTHRITIS
     Dosage: 2.4286 MG (17 MG, 1 IN 1 W)
  3. IRON [Concomitant]
     Active Substance: IRON
     Indication: PRODUCT USED FOR UNKNOWN INDICATION
     Dosage: UNK

REACTIONS (7)
  - Rheumatoid arthritis [Unknown]
  - Nasopharyngitis [Not Recovered/Not Resolved]
  - Poor quality sleep [Not Recovered/Not Resolved]
  - Headache [Unknown]
  - Restless legs syndrome [Unknown]
  - Depression [Unknown]
  - Tuberculosis [Unknown]

NARRATIVE: CASE EVENT DATE: 2016
